FAERS Safety Report 12337297 (Version 1)
Quarter: 2016Q2

REPORT INFORMATION
  Report Type: Report from Study
  Country: US (occurrence: US)
  Receive Date: 20160505
  Receipt Date: 20160505
  Transmission Date: 20160815
  Serious: Yes (Other)
  Sender: FDA-Public Use
  Company Number: US-MYLANLABS-2016M1018641

PATIENT

DRUGS (2)
  1. TOPOTECAN [Concomitant]
     Active Substance: TOPOTECAN\TOPOTECAN HYDROCHLORIDE
     Indication: RETINOBLASTOMA
     Dosage: 1 MG
  2. MELPHALAN [Suspect]
     Active Substance: MELPHALAN
     Indication: CONGENITAL RETINOBLASTOMA
     Dosage: 30 MICROG

REACTIONS (2)
  - Iris disorder [Unknown]
  - Iris hypopigmentation [Unknown]
